FAERS Safety Report 4590307-X (Version None)
Quarter: 2005Q1

REPORT INFORMATION
  Report Type: 
  Country: None (occurrence: None)
  Receive Date: 20050217
  Receipt Date: 20050204
  Transmission Date: 20050727
  Serious: Yes (Hospitalization)
  Sender: FDA-Public Use
  Company Number: 2005AP00862

PATIENT
  Age: 73 Year
  Sex: Male

DRUGS (3)
  1. ATACAND [Suspect]
     Indication: ESSENTIAL HYPERTENSION
     Dosage: 16 MG DAILY PO
     Route: 048
     Dates: end: 20040721
  2. LOSEC [Suspect]
     Indication: OESOPHAGEAL DISORDER
     Dosage: 20 MG DAILY PO
     Route: 048
     Dates: end: 20040721
  3. CONTRAST MEDIUM [Suspect]
     Dosage: 1 DF ONCE
     Dates: start: 20040721, end: 20040721

REACTIONS (2)
  - NEPHRITIS INTERSTITIAL [None]
  - RENAL TUBULAR NECROSIS [None]
